FAERS Safety Report 21252112 (Version 1)
Quarter: 2022Q3

REPORT INFORMATION
  Report Type: Spontaneous
  Country: US (occurrence: US)
  Receive Date: 20220825
  Receipt Date: 20220825
  Transmission Date: 20221027
  Serious: No
  Sender: FDA-Public Use
  Company Number: US-NOVARTISTESTPH-NVSC2022US189812

PATIENT
  Age: 40 Year
  Sex: Female
  Weight: 82.1 kg

DRUGS (3)
  1. ILARIS [Suspect]
     Active Substance: CANAKINUMAB
     Indication: Tumour necrosis factor receptor-associated periodic syndrome
     Dosage: 150 MG, QMO (ONCE A MONTH)
     Route: 058
     Dates: start: 20220725, end: 20220822
  2. ILARIS [Suspect]
     Active Substance: CANAKINUMAB
     Indication: Hypergammaglobulinaemia
     Dosage: 300 MG, QMO (ONCE A MONTH)
     Route: 058
     Dates: start: 20220823
  3. ILARIS [Suspect]
     Active Substance: CANAKINUMAB
     Indication: Familial mediterranean fever

REACTIONS (1)
  - Therapeutic product effect incomplete [Not Recovered/Not Resolved]

NARRATIVE: CASE EVENT DATE: 20220725
